FAERS Safety Report 11147772 (Version 1)
Quarter: 2015Q2

REPORT INFORMATION
  Report Type: Spontaneous
  Country: US (occurrence: US)
  Receive Date: 20150529
  Receipt Date: 20150529
  Transmission Date: 20150821
  Serious: Yes (Hospitalization, Other)
  Sender: FDA-Public Use
  Company Number: US-JNJFOC-20150514627

PATIENT
  Age: 56 Year
  Sex: Female
  Weight: 47.63 kg

DRUGS (8)
  1. PREDNISONE. [Suspect]
     Active Substance: PREDNISONE
     Indication: PRODUCT USED FOR UNKNOWN INDICATION
     Route: 065
  2. CORTISONE [Suspect]
     Active Substance: CORTISONE\HYDROCORTISONE
     Indication: PRODUCT USED FOR UNKNOWN INDICATION
     Route: 065
  3. ASPIRIN. [Suspect]
     Active Substance: ASPIRIN
     Indication: PRODUCT USED FOR UNKNOWN INDICATION
     Route: 065
  4. HUMIRA [Suspect]
     Active Substance: ADALIMUMAB
     Indication: RHEUMATOID ARTHRITIS
     Route: 058
     Dates: start: 200803, end: 20081006
  5. ADVIL [Suspect]
     Active Substance: IBUPROFEN
     Indication: PRODUCT USED FOR UNKNOWN INDICATION
     Route: 065
  6. TYLENOL [Concomitant]
     Active Substance: ACETAMINOPHEN
     Indication: PRODUCT USED FOR UNKNOWN INDICATION
     Route: 065
  7. BENADRYL [Suspect]
     Active Substance: DIPHENHYDRAMINE HYDROCHLORIDE
     Indication: URTICARIA
     Route: 048
     Dates: start: 20081006, end: 20081006
  8. XELJANZ [Suspect]
     Active Substance: TOFACITINIB CITRATE
     Indication: RHEUMATOID ARTHRITIS
     Route: 065
     Dates: start: 201408

REACTIONS (19)
  - Myocardial infarction [Unknown]
  - Hypertension [Unknown]
  - Off label use [Unknown]
  - Dyspnoea [Unknown]
  - Dizziness [Recovered/Resolved]
  - Abdominal distension [Unknown]
  - Gastric disorder [Unknown]
  - Injection site reaction [Recovering/Resolving]
  - Activities of daily living impaired [Recovered/Resolved]
  - Urticaria [Recovering/Resolving]
  - Fatigue [Not Recovered/Not Resolved]
  - Skin discolouration [Recovering/Resolving]
  - Nausea [Recovered/Resolved]
  - Injection site bruising [Recovering/Resolving]
  - Chest pain [Recovered/Resolved]
  - Vaginal haemorrhage [Unknown]
  - Back pain [Unknown]
  - Pruritus [Not Recovered/Not Resolved]
  - Rash [Unknown]

NARRATIVE: CASE EVENT DATE: 200809
